FAERS Safety Report 14110626 (Version 1)
Quarter: 2017Q4

REPORT INFORMATION
  Report Type: Report from Study
  Country: AR (occurrence: AR)
  Receive Date: 20171020
  Receipt Date: 20171020
  Transmission Date: 20180321
  Serious: Yes (Other)
  Sender: FDA-Public Use
  Company Number: PHHY2017AR136899

PATIENT
  Sex: Male

DRUGS (2)
  1. ENTRESTO [Suspect]
     Active Substance: SACUBITRIL\VALSARTAN
     Indication: CARDIAC FAILURE CHRONIC
     Dosage: 200 MG (97MG OF SACUBITRIL AND 103MG OF VALSARTAN), BID
     Route: 065
     Dates: start: 20160914
  2. LASIX [Concomitant]
     Active Substance: FUROSEMIDE
     Indication: FLUID RETENTION
     Dosage: UNK
     Route: 065

REACTIONS (5)
  - Infarction [Unknown]
  - Pleural effusion [Unknown]
  - Cardiac disorder [Unknown]
  - Arrhythmia [Not Recovered/Not Resolved]
  - Joint swelling [Unknown]
